FAERS Safety Report 9602136 (Version 1)
Quarter: 2013Q4

REPORT INFORMATION
  Report Type: Spontaneous
  Country: ES (occurrence: ES)
  Receive Date: 20131007
  Receipt Date: 20131007
  Transmission Date: 20140711
  Serious: Yes (Life-Threatening, Hospitalization)
  Sender: FDA-Public Use
  Company Number: ES-SA-2013SA096661

PATIENT
  Age: 48 Year
  Sex: Male

DRUGS (4)
  1. LANTUS [Suspect]
     Indication: TYPE 1 DIABETES MELLITUS
     Dosage: PATIENT ADMINISTRED 2 PENS OF LANTUS
     Route: 058
     Dates: start: 20130924, end: 20130924
  2. LANTUS [Suspect]
     Indication: TYPE 1 DIABETES MELLITUS
     Route: 058
  3. APIDRA [Suspect]
     Indication: TYPE 1 DIABETES MELLITUS
     Dosage: PATIENT ADMINITERED 3 PENS OF APIDRA
     Route: 058
     Dates: start: 20130924, end: 20130924
  4. APIDRA [Suspect]
     Indication: TYPE 1 DIABETES MELLITUS
     Route: 058

REACTIONS (2)
  - Suicide attempt [Unknown]
  - Loss of consciousness [Recovered/Resolved]
